FAERS Safety Report 22153770 (Version 1)
Quarter: 2023Q1

REPORT INFORMATION
  Report Type: Spontaneous
  Country: US (occurrence: US)
  Receive Date: 20230330
  Receipt Date: 20230330
  Transmission Date: 20230418
  Serious: Yes (Hospitalization, Other)
  Sender: FDA-Public Use
  Company Number: US-ESPERIONTHERAPEUTICS-2023USA00290

PATIENT
  Sex: Female
  Weight: 89.796 kg

DRUGS (2)
  1. NEXLIZET [Suspect]
     Active Substance: BEMPEDOIC ACID\EZETIMIBE
     Indication: Blood cholesterol abnormal
     Dosage: 1 DOSAGE FORM (180/10MG), QD
     Route: 048
     Dates: start: 202212
  2. CANDESARTAN [Concomitant]
     Active Substance: CANDESARTAN
     Dosage: 6 MILLIGRAM, QD
     Route: 065

REACTIONS (7)
  - Muscle injury [Unknown]
  - Pseudostroke [Unknown]
  - Tendon injury [Unknown]
  - Ligament rupture [Unknown]
  - Meniscus injury [Unknown]
  - Quality of life decreased [Unknown]
  - Weight decreased [Unknown]
